FAERS Safety Report 16931410 (Version 1)
Quarter: 2019Q4

REPORT INFORMATION
  Report Type: Spontaneous
  Country: US (occurrence: US)
  Receive Date: 20191017
  Receipt Date: 20191017
  Transmission Date: 20200122
  Serious: No
  Sender: FDA-Public Use
  Company Number: US-BAUSCH-BL-2019-026173

PATIENT
  Age: 62 Year
  Sex: Female

DRUGS (4)
  1. JUBLIA [Suspect]
     Active Substance: EFINACONAZOLE
     Indication: ONYCHOMYCOSIS
     Dosage: ON THE BIG TOE OF LEFT FOOT
     Route: 061
     Dates: start: 2019
  2. PLAVIX [Concomitant]
     Active Substance: CLOPIDOGREL BISULFATE
     Indication: PRODUCT USED FOR UNKNOWN INDICATION
  3. CLARITINE [Concomitant]
     Active Substance: LORATADINE
     Indication: PRODUCT USED FOR UNKNOWN INDICATION
     Route: 048
  4. TOPROL XL [Concomitant]
     Active Substance: METOPROLOL SUCCINATE
     Indication: PRODUCT USED FOR UNKNOWN INDICATION
     Route: 048

REACTIONS (2)
  - Nail disorder [Not Recovered/Not Resolved]
  - Application site pain [Not Recovered/Not Resolved]

NARRATIVE: CASE EVENT DATE: 201909
